FAERS Safety Report 9732998 (Version 1)
Quarter: 2013Q4

REPORT INFORMATION
  Report Type: Spontaneous
  Country: US (occurrence: US)
  Receive Date: 20131204
  Receipt Date: 20131204
  Transmission Date: 20140711
  Serious: No
  Sender: FDA-Public Use
  Company Number: US-GILEAD-2009-0021746

PATIENT
  Sex: Female
  Weight: 94.35 kg

DRUGS (11)
  1. LETAIRIS [Suspect]
     Indication: PULMONARY ARTERIAL HYPERTENSION
     Route: 048
     Dates: start: 20090303
  2. OXYGEN [Concomitant]
  3. LASIX [Concomitant]
  4. NORVASC [Concomitant]
  5. ATENOLOL [Concomitant]
  6. CRESTOR [Concomitant]
  7. RHINOCORT NASAL [Concomitant]
  8. KLOR-CON [Concomitant]
  9. DARVOCET-N [Concomitant]
  10. AMBIEN [Concomitant]
  11. NEXIUM [Concomitant]

REACTIONS (1)
  - Dyspnoea [Unknown]
